FAERS Safety Report 12180436 (Version 2)
Quarter: 2020Q2

REPORT INFORMATION
  Report Type: Spontaneous
  Country: US (occurrence: US)
  Receive Date: 20160315
  Receipt Date: 20200417
  Transmission Date: 20200713
  Serious: Yes (Death, Hospitalization, Other)
  Sender: FDA-Public Use
  Company Number: US-009507513-1603USA006397

PATIENT
  Sex: Female
  Weight: 62.13 kg

DRUGS (2)
  1. METFORMIN [Concomitant]
     Active Substance: METFORMIN HYDROCHLORIDE
  2. JANUVIA [Suspect]
     Active Substance: SITAGLIPTIN PHOSPHATE
     Dosage: 100 MILLIGRAM, QD
     Route: 048
     Dates: start: 20120710, end: 201304

REACTIONS (12)
  - Contusion [Unknown]
  - Uterine cancer [Unknown]
  - Vision blurred [Unknown]
  - Blood cholesterol increased [Unknown]
  - Nausea [Unknown]
  - Abdominal pain [Unknown]
  - Hepatitis [Unknown]
  - Depression [Unknown]
  - Pancreatic carcinoma [Fatal]
  - Pancreatic carcinoma metastatic [Unknown]
  - Chronic obstructive pulmonary disease [Unknown]
  - Schizophrenia [Unknown]

NARRATIVE: CASE EVENT DATE: 2012
